FAERS Safety Report 13524232 (Version 1)
Quarter: 2017Q2

REPORT INFORMATION
  Report Type: Spontaneous
  Country: CA (occurrence: CA)
  Receive Date: 20170508
  Receipt Date: 20170508
  Transmission Date: 20170830
  Serious: Yes (Disabling, Other)
  Sender: FDA-Public Use
  Company Number: CA-SHIRE-CA201709996

PATIENT
  Sex: Male
  Weight: 27.21 kg

DRUGS (1)
  1. VYVANSE [Suspect]
     Active Substance: LISDEXAMFETAMINE DIMESYLATE
     Indication: ATTENTION DEFICIT/HYPERACTIVITY DISORDER
     Dosage: UNK, 1X/DAY:QD
     Route: 048

REACTIONS (6)
  - Intentional self-injury [Recovered/Resolved]
  - Logorrhoea [Recovered/Resolved]
  - Aggression [Recovered/Resolved]
  - Impulsive behaviour [Recovered/Resolved]
  - Agitation [Recovered/Resolved]
  - Tachyphrenia [Recovered/Resolved]
